FAERS Safety Report 21482059 (Version 1)
Quarter: 2022Q4

REPORT INFORMATION
  Report Type: Spontaneous
  Country: AR (occurrence: AR)
  Receive Date: 20221020
  Receipt Date: 20221020
  Transmission Date: 20230113
  Serious: Yes (Hospitalization)
  Sender: FDA-Public Use
  Company Number: AR-MACLEODS PHARMACEUTICALS US LTD-MAC2022037899

PATIENT

DRUGS (53)
  1. LEVOFLOXACIN [Suspect]
     Active Substance: LEVOFLOXACIN
     Indication: Tuberculosis
     Dosage: UNK (START DATE 2009)
     Route: 065
  2. MOXIFLOXACIN [Suspect]
     Active Substance: MOXIFLOXACIN
     Indication: Tuberculosis
     Dosage: UNK (START DATE MAR 2012)
     Route: 065
  3. MOXIFLOXACIN [Suspect]
     Active Substance: MOXIFLOXACIN
     Dosage: UNK  (START DATE DEC 2012)
     Route: 065
  4. MOXIFLOXACIN [Suspect]
     Active Substance: MOXIFLOXACIN
     Dosage: UNK  (START DATE SEP 2013)
     Route: 065
  5. MOXIFLOXACIN [Suspect]
     Active Substance: MOXIFLOXACIN
     Dosage: UNK  (START DATE 2015)
     Route: 065
  6. PYRAZINAMIDE [Suspect]
     Active Substance: PYRAZINAMIDE
     Indication: Tuberculosis
     Dosage: UNK  (START DATE 2008)
     Route: 065
  7. PYRAZINAMIDE [Suspect]
     Active Substance: PYRAZINAMIDE
     Dosage: UNK  (START DATE 2009)
     Route: 065
  8. PYRAZINAMIDE [Suspect]
     Active Substance: PYRAZINAMIDE
     Dosage: UNK  (START DATE MAR 2012)
     Route: 065
  9. PYRAZINAMIDE [Suspect]
     Active Substance: PYRAZINAMIDE
     Dosage: UNK  (START DATE DEC 2012)
     Route: 065
  10. PYRAZINAMIDE [Suspect]
     Active Substance: PYRAZINAMIDE
     Dosage: UNK  (START DATE SEP 2013)
     Route: 065
  11. PYRAZINAMIDE [Suspect]
     Active Substance: PYRAZINAMIDE
     Dosage: UNK  (START DATE 2015)
     Route: 065
  12. RIFAMPIN [Suspect]
     Active Substance: RIFAMPIN
     Indication: Tuberculosis
     Dosage: UNK  (START DATE 2008)
     Route: 065
  13. RIFAMPIN [Suspect]
     Active Substance: RIFAMPIN
     Dosage: UNK  (START DATE 2008)
     Route: 065
  14. RIFAMPIN [Suspect]
     Active Substance: RIFAMPIN
     Dosage: UNK  (START DATE 2009)
     Route: 065
  15. ISONIAZID [Suspect]
     Active Substance: ISONIAZID
     Indication: Tuberculosis
     Dosage: UNK  (START DATE 2008)
     Route: 065
  16. ISONIAZID [Suspect]
     Active Substance: ISONIAZID
     Dosage: UNK  (START DATE 2008)
     Route: 065
  17. ISONIAZID [Suspect]
     Active Substance: ISONIAZID
     Dosage: UNK  (START DATE 2009)
     Route: 065
     Dates: start: 2009
  18. STREPTOMYCIN [Suspect]
     Active Substance: STREPTOMYCIN SULFATE
     Indication: Tuberculosis
     Dosage: UNK  (START DATE AUG 2011)
     Route: 065
  19. ETHAMBUTOL [Suspect]
     Active Substance: ETHAMBUTOL HYDROCHLORIDE
     Indication: Tuberculosis
     Dosage: UNK  (START DATE 2008)
     Route: 065
  20. ETHAMBUTOL [Suspect]
     Active Substance: ETHAMBUTOL HYDROCHLORIDE
     Dosage: UNK  (START DATE 2009)
     Route: 065
  21. ETHAMBUTOL [Suspect]
     Active Substance: ETHAMBUTOL HYDROCHLORIDE
     Dosage: UNK  (START DATE AUG 2011)
     Route: 065
  22. ETHAMBUTOL [Suspect]
     Active Substance: ETHAMBUTOL HYDROCHLORIDE
     Dosage: UNK  (START DATE MAR 2012)
     Route: 065
  23. ETHAMBUTOL [Suspect]
     Active Substance: ETHAMBUTOL HYDROCHLORIDE
     Dosage: UNK  (START DATE DEC 2012)
     Route: 065
  24. KANAMYCIN [Suspect]
     Active Substance: KANAMYCIN A SULFATE
     Indication: Tuberculosis
     Dosage: UNK  (START DATE AUG 2011)
     Route: 065
  25. KANAMYCIN [Suspect]
     Active Substance: KANAMYCIN A SULFATE
     Dosage: UNK  (START DATE MAR 2012)
     Route: 065
  26. KANAMYCIN [Suspect]
     Active Substance: KANAMYCIN A SULFATE
     Dosage: UNK  (START DATE DEC 2012)
     Route: 065
  27. KANAMYCIN [Suspect]
     Active Substance: KANAMYCIN A SULFATE
     Dosage: UNK  (START DATE SEP 2013)
     Route: 065
  28. KANAMYCIN [Suspect]
     Active Substance: KANAMYCIN A SULFATE
     Dosage: UNK  (START DATE 2015)
     Route: 065
  29. OFLOXACIN [Suspect]
     Active Substance: OFLOXACIN
     Indication: Tuberculosis
     Dosage: UNK  (START DATE AUG 2011)
     Route: 065
     Dates: start: 201108
  30. AMIKACIN [Suspect]
     Active Substance: AMIKACIN
     Indication: Tuberculosis
     Dosage: UNK  (START DATE AUG 2011)
     Route: 065
  31. AMIKACIN [Suspect]
     Active Substance: AMIKACIN
     Dosage: UNK  (START DATE MAR 2012)
     Route: 065
  32. AMIKACIN [Suspect]
     Active Substance: AMIKACIN
     Dosage: UNK  (START DATE DEC 2012)
     Route: 065
  33. TERIZIDONE [Suspect]
     Active Substance: TERIZIDONE
     Indication: Tuberculosis
     Dosage: UNK  (START DATE AUG 2011)
     Route: 065
  34. AMINOSALICYLIC ACID [Suspect]
     Active Substance: AMINOSALICYLIC ACID
     Indication: Tuberculosis
     Dosage: UNK  (START DATE AUG 2011)
     Route: 065
  35. AMINOSALICYLIC ACID [Suspect]
     Active Substance: AMINOSALICYLIC ACID
     Dosage: UNK  (START DATE MAR 2012)
     Route: 065
  36. AMINOSALICYLIC ACID [Suspect]
     Active Substance: AMINOSALICYLIC ACID
     Dosage: UNK  (START DATE DEC 2012)
     Route: 065
  37. AMINOSALICYLIC ACID [Suspect]
     Active Substance: AMINOSALICYLIC ACID
     Dosage: UNK  (START DATE SEP 2013)
     Route: 065
  38. AMINOSALICYLIC ACID [Suspect]
     Active Substance: AMINOSALICYLIC ACID
     Dosage: UNK  (START DATE 2015)
     Route: 065
  39. ETHIONAMIDE [Suspect]
     Active Substance: ETHIONAMIDE
     Indication: Tuberculosis
     Dosage: UNK  (START DATE AUG 2011)
     Route: 065
  40. ETHIONAMIDE [Suspect]
     Active Substance: ETHIONAMIDE
     Dosage: UNK  (START DATE MAR 2012)
     Route: 065
  41. ETHIONAMIDE [Suspect]
     Active Substance: ETHIONAMIDE
     Dosage: UNK  (START DATE SEP 2013)
     Route: 065
  42. ETHIONAMIDE [Suspect]
     Active Substance: ETHIONAMIDE
     Dosage: UNK  (START DATE 2015)
     Route: 065
  43. CAPREOMYCIN [Suspect]
     Active Substance: CAPREOMYCIN
     Indication: Tuberculosis
     Dosage: UNK  (START DATE MAR 2012)
     Route: 065
  44. CAPREOMYCIN [Suspect]
     Active Substance: CAPREOMYCIN
     Dosage: UNK  (START DATE DEC 2012)
     Route: 065
  45. CYCLOSERINE [Suspect]
     Active Substance: CYCLOSERINE
     Indication: Tuberculosis
     Dosage: UNK  (START DATE MAR 2012)
     Route: 065
  46. CYCLOSERINE [Suspect]
     Active Substance: CYCLOSERINE
     Dosage: UNK  (START DATE DEC 2012)
     Route: 065
  47. CYCLOSERINE [Suspect]
     Active Substance: CYCLOSERINE
     Dosage: UNK  (START DATE SEP 2013)
     Route: 065
  48. CYCLOSERINE [Suspect]
     Active Substance: CYCLOSERINE
     Dosage: UNK  (START DATE 2015)
     Route: 065
  49. LINEZOLID [Suspect]
     Active Substance: LINEZOLID
     Indication: Tuberculosis
     Dosage: UNK  (START DATE MAR 2012)
     Route: 065
  50. LINEZOLID [Suspect]
     Active Substance: LINEZOLID
     Dosage: UNK  (START DATE DEC 2012)
     Route: 065
  51. LINEZOLID [Suspect]
     Active Substance: LINEZOLID
     Dosage: UNK  (START DATE 2015)
     Route: 065
  52. MEROPENEM [Suspect]
     Active Substance: MEROPENEM
     Indication: Tuberculosis
     Dosage: UNK  (START DATE SEP 2013)
     Route: 065
  53. CLAVULANIC ACID [Suspect]
     Active Substance: CLAVULANIC ACID

REACTIONS (2)
  - Drug resistance [Recovered/Resolved]
  - Treatment noncompliance [Recovered/Resolved]
